FAERS Safety Report 11850457 (Version 2)
Quarter: 2016Q1

REPORT INFORMATION
  Report Type: Spontaneous
  Country: US (occurrence: US)
  Receive Date: 20151218
  Receipt Date: 20160203
  Transmission Date: 20160526
  Serious: No
  Sender: FDA-Public Use
  Company Number: US-JNJFOC-20151123053

PATIENT
  Age: 1 Year
  Sex: Male
  Weight: 11.79 kg

DRUGS (5)
  1. MOTRIN INFANTS [Suspect]
     Active Substance: IBUPROFEN
     Indication: TEETHING
     Dosage: ABOUT 3.0-3.5ML
     Route: 048
     Dates: start: 20151123, end: 20151123
  2. ZARTAN [Concomitant]
     Active Substance: LOSARTAN POTASSIUM
     Indication: PRODUCT USED FOR UNKNOWN INDICATION
  3. MOTRIN INFANTS [Suspect]
     Active Substance: IBUPROFEN
     Route: 048
  4. ASPIRIN. [Concomitant]
     Active Substance: ASPIRIN
     Indication: ANTICOAGULANT THERAPY
  5. LASIX [Concomitant]
     Active Substance: FUROSEMIDE
     Indication: DRUG LEVEL DECREASED

REACTIONS (2)
  - Extra dose administered [Unknown]
  - Drug prescribing error [Unknown]

NARRATIVE: CASE EVENT DATE: 20151123
